FAERS Safety Report 18574873 (Version 1)
Quarter: 2020Q4

REPORT INFORMATION
  Report Type: Spontaneous
  Country: US (occurrence: US)
  Receive Date: 20201203
  Receipt Date: 20201203
  Transmission Date: 20210114
  Serious: Yes (Other)
  Sender: FDA-Public Use
  Company Number: None

PATIENT
  Age: 86 Year
  Sex: Female
  Weight: 87.5 kg

DRUGS (11)
  1. ASPIRIN ENTERIC COATED 81MG [Concomitant]
     Dates: start: 20201128
  2. POTASSIUM-SODIUM PHOSPHATE ORAL 750MG [Concomitant]
     Dates: start: 20201201, end: 20201201
  3. REMDESIVIR. [Suspect]
     Active Substance: REMDESIVIR
     Indication: COVID-19
     Route: 041
     Dates: start: 20201130, end: 20201201
  4. AMLODIPINE 10MG TABLET [Concomitant]
     Dates: start: 20201128, end: 20201202
  5. ENOXAPARIN 40MG SUBCUTANEOUS INJECTION [Concomitant]
     Dates: start: 20201128
  6. GUAIFENESIN-DEXTROMETHORPHAN 100-10 MG/5 ML ORAL SOLUTION, 10ML [Concomitant]
     Dates: start: 20201128
  7. CARVEDILOL 6.25MG TABLET [Concomitant]
     Dates: start: 20201128
  8. INSULIN GLARGINE SUBCUTANEOUS INJECTION [Concomitant]
     Dates: start: 20201128
  9. LEVOTHYROXINE 100MCG TABLET [Concomitant]
     Dates: start: 20201128
  10. POTASSIUM CHLORIDE 20 MEQ/250ML NSS INTRAVENOUSLY [Concomitant]
     Dates: start: 20201201, end: 20201201
  11. BENZONATATE 200MG CAPSULES [Concomitant]
     Active Substance: BENZONATATE
     Dates: start: 20201128

REACTIONS (2)
  - Tongue oedema [None]
  - Hypoaesthesia oral [None]

NARRATIVE: CASE EVENT DATE: 20201201
